FAERS Safety Report 17124799 (Version 4)
Quarter: 2020Q1

REPORT INFORMATION
  Report Type: Report from Study
  Country: US (occurrence: US)
  Receive Date: 20191206
  Receipt Date: 20200109
  Transmission Date: 20200409
  Serious: No
  Sender: FDA-Public Use
  Company Number: NVSC2019US061430

PATIENT
  Age: 51 Year
  Sex: Female

DRUGS (2)
  1. PIQRAY [Suspect]
     Active Substance: ALPELISIB
     Route: 048
  2. PIQRAY [Suspect]
     Active Substance: ALPELISIB
     Indication: PRODUCT USED FOR UNKNOWN INDICATION
     Dosage: 300 MG
     Route: 048
     Dates: start: 20191120, end: 20191204

REACTIONS (10)
  - Fatigue [Recovered/Resolved]
  - Decreased appetite [Recovered/Resolved]
  - Dehydration [Unknown]
  - Nausea [Unknown]
  - Abdominal pain upper [Recovered/Resolved]
  - Vomiting [Recovered/Resolved]
  - Feeding disorder [Unknown]
  - Asthenia [Unknown]
  - Weight decreased [Unknown]
  - Dizziness [Recovered/Resolved]

NARRATIVE: CASE EVENT DATE: 20191120
